FAERS Safety Report 5859069-X (Version None)
Quarter: 2008Q3

REPORT INFORMATION
  Report Type: 
  Country: None (occurrence: None)
  Receive Date: 20080827
  Receipt Date: 20080815
  Transmission Date: 20090109
  Serious: Yes (Hospitalization)
  Sender: FDA-Public Use
  Company Number: NL-BRISTOL-MYERS SQUIBB COMPANY-14313548

PATIENT
  Age: 69 Year
  Sex: Male
  Weight: 68 kg

DRUGS (9)
  1. ERBITUX [Suspect]
     Indication: LARYNGEAL CANCER
     Route: 042
     Dates: start: 20080721, end: 20080810
  2. CHEMOTHERAPY [Concomitant]
     Indication: LARYNGEAL CANCER
  3. RADIATION THERAPY [Concomitant]
     Indication: LARYNGEAL CANCER
  4. FUROSEMIDE [Concomitant]
     Indication: HYPERTENSION
     Route: 048
  5. ACENOCOUMAROL [Concomitant]
     Indication: ATRIAL FIBRILLATION
     Route: 048
  6. PANTOZOL [Concomitant]
     Indication: PROPHYLAXIS
     Route: 048
  7. NIFEDIPINE [Concomitant]
     Indication: HYPERTENSION
     Route: 048
  8. FOSINOPRIL SODIUM [Concomitant]
     Indication: HYPERTENSION
     Route: 048
  9. METOPROLOL TARTRATE [Concomitant]
     Indication: ARRHYTHMIA
     Route: 048

REACTIONS (1)
  - PANCREATITIS [None]
